FAERS Safety Report 10816704 (Version 2)
Quarter: 2015Q2

REPORT INFORMATION
  Report Type: Spontaneous
  Country: FR (occurrence: FR)
  Receive Date: 20150218
  Receipt Date: 20150422
  Transmission Date: 20150821
  Serious: Yes (Hospitalization)
  Sender: FDA-Public Use
  Company Number: FR-PFIZER INC-2015056042

PATIENT
  Age: 69 Year
  Sex: Female

DRUGS (2)
  1. IBUPROFEN. [Suspect]
     Active Substance: IBUPROFEN
     Indication: TONSILLITIS
     Dosage: 1 DF, 2X/DAY
     Route: 048
     Dates: start: 20141230, end: 20150101
  2. ZITHROMAX [Suspect]
     Active Substance: AZITHROMYCIN DIHYDRATE
     Indication: TONSILLITIS
     Dosage: 500 MG (2 DOSAGE FORM OF 250 MG EACH), 1X/DAY
     Route: 048
     Dates: start: 20141230, end: 20150101

REACTIONS (4)
  - Vasculitis [Unknown]
  - Pharyngeal erythema [Unknown]
  - Oropharyngeal pain [Unknown]
  - Rash pustular [Recovered/Resolved]

NARRATIVE: CASE EVENT DATE: 20150102
